FAERS Safety Report 5101540-2 (Version None)
Quarter: 2006Q3

REPORT INFORMATION
  Report Type: 
  Country: None (occurrence: None)
  Receive Date: 20060911
  Receipt Date: 20060904
  Transmission Date: 20061208
  Serious: Yes (Death, Life-Threatening)
  Sender: FDA-Public Use
  Company Number: IL-NOVOPROD-256588

PATIENT
  Age: 78 Year
  Sex: Female

DRUGS (1)
  1. NOVOSEVEN [Suspect]
     Indication: CEREBRAL HAEMORRHAGE
     Dosage: 4.8 MG, QD
     Route: 058
     Dates: start: 20060820, end: 20060820

REACTIONS (3)
  - HYDROCEPHALUS [None]
  - PNEUMONIA [None]
  - SEPSIS [None]
